FAERS Safety Report 8009232-7 (Version None)
Quarter: 2011Q4

REPORT INFORMATION
  Report Type: 
  Country: None (occurrence: None)
  Receive Date: 20111227
  Receipt Date: 20111220
  Transmission Date: 20120403
  Serious: Yes (Other)
  Sender: FDA-Public Use
  Company Number: JP-ASTRAZENECA-2011SE78035

PATIENT

DRUGS (3)
  1. CANDESARTAN CILEXETIL [Suspect]
     Indication: HYPERTENSION
     Route: 048
     Dates: start: 20111220, end: 20111220
  2. CONIEL [Concomitant]
     Route: 048
  3. ARICEPT [Concomitant]
     Route: 048

REACTIONS (1)
  - OVERDOSE [None]
